FAERS Safety Report 4357003-5 (Version None)
Quarter: 2004Q2

REPORT INFORMATION
  Report Type: 
  Country: None (occurrence: None)
  Receive Date: 20040507
  Receipt Date: 20040421
  Transmission Date: 20050107
  Serious: Yes (Hospitalization, Other)
  Sender: FDA-Public Use
  Company Number: USA040465584

PATIENT
  Age: 51 Year
  Sex: Male

DRUGS (2)
  1. ZYPREXA [Suspect]
     Dosage: 10 MG AT BEDTIME
  2. LORTAB [Concomitant]

REACTIONS (6)
  - AGITATION [None]
  - AUTONOMIC NERVOUS SYSTEM IMBALANCE [None]
  - BLOOD CREATINE PHOSPHOKINASE INCREASED [None]
  - DELIRIUM [None]
  - ELECTROCARDIOGRAM QT CORRECTED INTERVAL PROLONGED [None]
  - MULTIPLE DRUG OVERDOSE [None]
